FAERS Safety Report 21203332 (Version 2)
Quarter: 2022Q3

REPORT INFORMATION
  Report Type: Spontaneous
  Country: US (occurrence: US)
  Receive Date: 20220811
  Receipt Date: 20220921
  Transmission Date: 20221027
  Serious: Yes (Disabling)
  Sender: FDA-Public Use
  Company Number: US-PFIZER INC-202201050346

PATIENT
  Sex: Female
  Weight: 72.562 kg

DRUGS (3)
  1. NARDIL [Suspect]
     Active Substance: PHENELZINE SULFATE
     Indication: Bipolar disorder
     Dosage: 55.5 MG, DAILY ((30MG AM, 22.5 MG PM)
     Dates: start: 199106
  2. NARDIL [Suspect]
     Active Substance: PHENELZINE SULFATE
     Dosage: 52 MG (30MG AM, 22 MG PM)
     Dates: start: 1991
  3. LITHIUM [Concomitant]
     Active Substance: LITHIUM
     Dosage: UNK
     Dates: start: 199106

REACTIONS (3)
  - Drug ineffective [Unknown]
  - Nausea [Unknown]
  - Illness [Unknown]
